FAERS Safety Report 25005356 (Version 1)
Quarter: 2025Q1

REPORT INFORMATION
  Report Type: Spontaneous
  Country: KR (occurrence: KR)
  Receive Date: 20250224
  Receipt Date: 20250224
  Transmission Date: 20250408
  Serious: Yes (Hospitalization)
  Sender: MERCK SHARP & DOHME LLC
  Company Number: KR-AstraZeneca-2024A160988

PATIENT
  Age: 70 Year
  Sex: Female

DRUGS (12)
  1. PEMBROLIZUMAB [Suspect]
     Active Substance: PEMBROLIZUMAB
     Indication: Triple negative breast cancer
     Route: 042
     Dates: start: 20240319, end: 20240619
  2. CARBOPLATIN [Suspect]
     Active Substance: CARBOPLATIN
     Indication: Triple negative breast cancer
     Dates: start: 20240319, end: 20250131
  3. DOXORUBICIN [Suspect]
     Active Substance: DOXORUBICIN
     Indication: Triple negative breast cancer
     Dates: start: 20240705, end: 20240911
  4. CYCLOPHOSPHAMIDE [Suspect]
     Active Substance: CYCLOPHOSPHAMIDE
     Indication: Triple negative breast cancer
     Dates: start: 20240705, end: 20240911
  5. HERBALS [Concomitant]
     Active Substance: HERBALS
     Indication: Gastritis
     Dates: start: 20240419
  6. PACLITAXEL [Suspect]
     Active Substance: PACLITAXEL
     Indication: Triple negative breast cancer
     Dates: start: 20240319, end: 20240619
  7. HARMONILAN [Concomitant]
     Indication: Nutritional supplementation
     Dates: start: 20240327
  8. LANSOPRAZOLE [Concomitant]
     Active Substance: LANSOPRAZOLE
     Indication: Gastritis
     Dates: start: 20240419
  9. PHENIL [CHLORPHENAMINE MALEATE] [Concomitant]
     Indication: Chemotherapy
     Dates: start: 20240319
  10. AKYNZEO [Concomitant]
     Indication: Chemotherapy
     Dates: start: 20240412
  11. DEXAMETHASONE [Concomitant]
     Active Substance: DEXAMETHASONE
     Indication: Chemotherapy side effect prophylaxis
     Route: 042
     Dates: start: 20240319
  12. TACENOL [Concomitant]
     Indication: Prophylaxis
     Dates: start: 20240531

REACTIONS (1)
  - Febrile neutropenia [Recovered/Resolved]

NARRATIVE: CASE EVENT DATE: 20240712
